FAERS Safety Report 8127027-0 (Version None)
Quarter: 2012Q1

REPORT INFORMATION
  Report Type: 
  Country: None (occurrence: None)
  Receive Date: 20120210
  Receipt Date: 20120206
  Transmission Date: 20120608
  Serious: Yes (Other)
  Sender: FDA-Public Use
  Company Number: US-PFIZER INC-2012032398

PATIENT
  Sex: Female
  Weight: 73 kg

DRUGS (7)
  1. METHENAMINE HIPPURATE [Concomitant]
     Indication: BLADDER DISORDER
     Dosage: 1.5 G, 1X/DAY
  2. ESTRADIOL [Concomitant]
     Dosage: 0.25 MG, 1X/DAY
  3. TIKOSYN [Suspect]
     Indication: ATRIAL FIBRILLATION
     Dosage: 0.5 MG, 2X/DAY
     Route: 048
     Dates: start: 20090101, end: 20090101
  4. TIKOSYN [Suspect]
     Dosage: 0.25 MG, 2X/DAY
     Dates: start: 20090101, end: 20120201
  5. METOPROLOL [Concomitant]
     Indication: HEART RATE IRREGULAR
     Dosage: 12.5 MG, 2X/DAY
  6. ENALAPRIL MALEATE [Concomitant]
     Indication: HYPERTENSION
     Dosage: 50 MG, 2X/DAY
  7. ESTROGENS ESTERIFIED AND METHYLTESTOSTERONE [Concomitant]
     Dosage: 0.21 MG DAILY

REACTIONS (1)
  - CARDIAC FIBRILLATION [None]
